FAERS Safety Report 5034791-6 (Version None)
Quarter: 2006Q2

REPORT INFORMATION
  Report Type: 
  Country: None (occurrence: None)
  Receive Date: 20060509
  Receipt Date: 20050519
  Transmission Date: 20061013
  Serious: Yes (Hospitalization)
  Sender: FDA-Public Use
  Company Number: 405299

PATIENT
  Sex: Female

DRUGS (3)
  1. NAPROXEN [Suspect]
     Indication: ARTHRITIS
     Dosage: ORAL
     Route: 048
  2. FELDENE [Suspect]
     Indication: ARTHRITIS
  3. CELEBREX [Suspect]
     Indication: ARTHRITIS

REACTIONS (4)
  - ABDOMINAL PAIN UPPER [None]
  - GASTROOESOPHAGEAL REFLUX DISEASE [None]
  - HAEMORRHAGE [None]
  - ULCER HAEMORRHAGE [None]
